FAERS Safety Report 7396117-2 (Version None)
Quarter: 2011Q2

REPORT INFORMATION
  Report Type: 
  Country: None (occurrence: None)
  Receive Date: 20110406
  Receipt Date: 20110325
  Transmission Date: 20111010
  Serious: Yes (Hospitalization)
  Sender: FDA-Public Use
  Company Number: US-ELI_LILLY_AND_COMPANY-US201103008990

PATIENT
  Sex: Female

DRUGS (2)
  1. HUMULIN N [Suspect]
     Indication: DIABETES MELLITUS
     Dosage: 20 U, EACH MORNING
     Dates: start: 20080101
  2. HUMULIN N [Suspect]
     Dosage: 12 U, EACH EVENING
     Dates: start: 20080101

REACTIONS (3)
  - BLOOD GLUCOSE DECREASED [None]
  - SYNCOPE [None]
  - FALL [None]
